FAERS Safety Report 10242134 (Version 5)
Quarter: 2018Q3

REPORT INFORMATION
  Report Type: Spontaneous
  Country: FR (occurrence: FR)
  Receive Date: 20140617
  Receipt Date: 20180814
  Transmission Date: 20181010
  Serious: Yes (Other)
  Sender: FDA-Public Use
  Company Number: PHHY2014FR071558

PATIENT
  Age: 17 Year
  Sex: Female

DRUGS (5)
  1. LONARID MONO [Suspect]
     Active Substance: ACETAMINOPHEN
     Indication: PAIN
     Dosage: UNK
     Route: 065
  2. IBUPROFEN. [Suspect]
     Active Substance: IBUPROFEN
     Indication: ARTHRALGIA
     Dosage: 400 MG, 5QD
     Route: 065
     Dates: start: 201306
  3. IBUPROFEN. [Suspect]
     Active Substance: IBUPROFEN
     Indication: PAIN
     Dosage: 400 MG, QID
     Route: 065
     Dates: start: 201302
  4. IBUPROFEN. [Suspect]
     Active Substance: IBUPROFEN
     Indication: CHONDROPATHY
     Dosage: 400 MG, 8QD
     Route: 065
     Dates: start: 201304
  5. MIRTAZAPINE. [Concomitant]
     Active Substance: MIRTAZAPINE
     Indication: MAJOR DEPRESSION
     Dosage: 15 MG, QD
     Route: 065
     Dates: start: 201303

REACTIONS (13)
  - Arthralgia [Unknown]
  - Drug withdrawal syndrome [Unknown]
  - Drug dependence [Unknown]
  - Drug effect incomplete [Unknown]
  - Irritability [Unknown]
  - Intentional overdose [Unknown]
  - Headache [Unknown]
  - Drug withdrawal headache [Unknown]
  - Tremor [Unknown]
  - Hyperhidrosis [Unknown]
  - Drug abuse [Unknown]
  - Anxiety [Unknown]
  - Substance abuse [Unknown]

NARRATIVE: CASE EVENT DATE: 2013
